FAERS Safety Report 5829539-9 (Version None)
Quarter: 2008Q3

REPORT INFORMATION
  Report Type: 
  Country: None (occurrence: None)
  Receive Date: 20080729
  Receipt Date: 20080717
  Transmission Date: 20090109
  Serious: Yes (Other)
  Sender: FDA-Public Use
  Company Number: 236740J08USA

PATIENT
  Age: 51 Year
  Sex: Female
  Weight: 73.9363 kg

DRUGS (2)
  1. REBIF [Suspect]
     Indication: MULTIPLE SCLEROSIS
     Dosage: 44 MCG, 3 IN 1 WEEKS, SUBCUTANEOUS
     Route: 058
     Dates: start: 20080414, end: 20080601
  2. LEVOXYL [Concomitant]

REACTIONS (11)
  - ASTHENIA [None]
  - CHEST PAIN [None]
  - DEPRESSION [None]
  - EATING DISORDER [None]
  - FATIGUE [None]
  - FEELING HOT [None]
  - FULL BLOOD COUNT DECREASED [None]
  - HYPOAESTHESIA [None]
  - NAUSEA [None]
  - PAIN [None]
  - PARAESTHESIA [None]
